FAERS Safety Report 8614495-0 (Version None)
Quarter: 2012Q3

REPORT INFORMATION
  Report Type: 
  Country: None (occurrence: None)
  Receive Date: 20120823
  Receipt Date: 20120817
  Transmission Date: 20120928
  Serious: Yes (Other)
  Sender: FDA-Public Use
  Company Number: PHEH2012US013164

PATIENT
  Sex: Female

DRUGS (1)
  1. VIVELLE-DOT [Suspect]
     Route: 062

REACTIONS (6)
  - LOSS OF CONSCIOUSNESS [None]
  - CONVULSION [None]
  - FOREIGN BODY [None]
  - ACCIDENT AT WORK [None]
  - WRONG TECHNIQUE IN DRUG USAGE PROCESS [None]
  - HORMONE LEVEL ABNORMAL [None]
